FAERS Safety Report 4376329-2 (Version None)
Quarter: 2004Q2

REPORT INFORMATION
  Report Type: 
  Country: None (occurrence: None)
  Receive Date: 20040603
  Receipt Date: 20031119
  Transmission Date: 20050107
  Serious: Yes (Other)
  Sender: FDA-Public Use
  Company Number: 200319351US

PATIENT
  Sex: Male

DRUGS (3)
  1. LOVENOX [Suspect]
     Indication: DEEP VEIN THROMBOSIS
     Dosage: 70 MG BID INJ
     Route: 042
  2. LOVENOX [Suspect]
     Indication: DEEP VEIN THROMBOSIS
  3. ANTIBIOTICS [Concomitant]

REACTIONS (1)
  - HAEMATOMA [None]
